FAERS Safety Report 18962438 (Version 1)
Quarter: 2021Q1

REPORT INFORMATION
  Report Type: Spontaneous
  Country: CN (occurrence: CN)
  Receive Date: 20210303
  Receipt Date: 20210303
  Transmission Date: 20210420
  Serious: Yes (Hospitalization)
  Sender: FDA-Public Use
  Company Number: CN-ABBVIE-21P-035-3796527-00

PATIENT
  Age: 64 Year
  Sex: Male

DRUGS (1)
  1. LIPANTHYL [Suspect]
     Active Substance: FENOFIBRATE
     Indication: LIPIDS INCREASED
     Route: 048
     Dates: start: 201908

REACTIONS (7)
  - Yellow skin [Unknown]
  - Biliary obstruction [Unknown]
  - Blood bilirubin increased [Recovered/Resolved]
  - Cholelithiasis [Unknown]
  - Cholecystitis [Unknown]
  - Drug-induced liver injury [Unknown]
  - Transaminases increased [Recovering/Resolving]

NARRATIVE: CASE EVENT DATE: 201910
